FAERS Safety Report 10207537 (Version 2)
Quarter: 2014Q3

REPORT INFORMATION
  Report Type: Spontaneous
  Country: US (occurrence: US)
  Receive Date: 20140530
  Receipt Date: 20140718
  Transmission Date: 20150326
  Serious: No
  Sender: FDA-Public Use
  Company Number: US-PFIZER INC-2014146380

PATIENT
  Age: 69 Year
  Sex: Female

DRUGS (2)
  1. TYGACIL [Suspect]
     Active Substance: TIGECYCLINE
     Indication: INTESTINAL PERFORATION
  2. TYGACIL [Suspect]
     Active Substance: TIGECYCLINE
     Indication: PERITONITIS
     Dosage: 50 MG, 2X/DAY (Q 12H)
     Route: 042
     Dates: start: 20140502, end: 20140606

REACTIONS (4)
  - Skin discolouration [Recovering/Resolving]
  - Contusion [Recovering/Resolving]
  - Peripheral coldness [Recovering/Resolving]
  - Extravasation [Recovering/Resolving]

NARRATIVE: CASE EVENT DATE: 20140527
